FAERS Safety Report 6175263-5 (Version None)
Quarter: 2009Q2

REPORT INFORMATION
  Report Type: 
  Country: None (occurrence: None)
  Receive Date: 20090430
  Receipt Date: 20090203
  Transmission Date: 20091009
  Serious: No
  Sender: FDA-Public Use
  Company Number: US-ASTRAZENECA-2009UW03228

PATIENT
  Sex: Male

DRUGS (4)
  1. NEXIUM [Suspect]
     Indication: GASTROOESOPHAGEAL REFLUX DISEASE
     Route: 048
     Dates: start: 20090122
  2. TOPROL-XL [Concomitant]
     Route: 048
  3. XANAX [Concomitant]
  4. NORTRIPTYLINE HCL [Concomitant]

REACTIONS (2)
  - ANXIETY [None]
  - FATIGUE [None]
